FAERS Safety Report 23297242 (Version 1)
Quarter: 2023Q4

REPORT INFORMATION
  Report Type: Spontaneous
  Country: FR (occurrence: FR)
  Receive Date: 20231214
  Receipt Date: 20231214
  Transmission Date: 20240109
  Serious: No
  Sender: FDA-Public Use
  Company Number: FR-PFIZER INC-202300414560

PATIENT
  Age: 64 Year
  Sex: Female

DRUGS (1)
  1. ENBREL [Suspect]
     Active Substance: ETANERCEPT
     Dosage: ONCE A WEEK
     Dates: start: 2005

REACTIONS (3)
  - Needle issue [Unknown]
  - Injection site pain [Unknown]
  - Injection site mass [Unknown]
